FAERS Safety Report 21172386 (Version 2)
Quarter: 2022Q3

REPORT INFORMATION
  Report Type: Spontaneous
  Country: US (occurrence: US)
  Receive Date: 20220804
  Receipt Date: 20220913
  Transmission Date: 20221027
  Serious: No
  Sender: FDA-Public Use
  Company Number: US-BAYER-2022A107577

PATIENT
  Age: 20 Year
  Sex: Female

DRUGS (1)
  1. SKYLA [Suspect]
     Active Substance: LEVONORGESTREL
     Indication: Contraception
     Dosage: 14?G/DAY
     Route: 015

REACTIONS (5)
  - Contraindicated device used [None]
  - Off label use of device [None]
  - Intentional device use issue [None]
  - Vaginal haemorrhage [Recovered/Resolved]
  - Amenorrhoea [None]
